FAERS Safety Report 5195931-1 (Version None)
Quarter: 2006Q4

REPORT INFORMATION
  Report Type: 
  Country: None (occurrence: None)
  Receive Date: 20061227
  Receipt Date: 20061227
  Transmission Date: 20070319
  Serious: Yes (Other)
  Sender: FDA-Public Use
  Company Number: None

PATIENT
  Age: 35 Year
  Sex: Female

DRUGS (1)
  1. PERPHENAZINE [Suspect]
     Dosage: 8 MG BID PO
     Route: 048

REACTIONS (10)
  - ABASIA [None]
  - DIARRHOEA [None]
  - DROOLING [None]
  - DYSPHAGIA [None]
  - MASTICATION DISORDER [None]
  - MOVEMENT DISORDER [None]
  - MUSCLE RIGIDITY [None]
  - MUSCULOSKELETAL STIFFNESS [None]
  - URINARY INCONTINENCE [None]
  - VOMITING [None]
